FAERS Safety Report 16921362 (Version 2)
Quarter: 2019Q4

REPORT INFORMATION
  Report Type: Spontaneous
  Country: US (occurrence: US)
  Receive Date: 20191015
  Receipt Date: 20191112
  Transmission Date: 20200122
  Serious: No
  Sender: FDA-Public Use
  Company Number: US-SA-2019SA279283

PATIENT
  Sex: Female
  Weight: 72.56 kg

DRUGS (6)
  1. CRESTOR [Concomitant]
     Active Substance: ROSUVASTATIN CALCIUM
  2. DUPIXENT [Suspect]
     Active Substance: DUPILUMAB
     Indication: PRODUCT USED FOR UNKNOWN INDICATION
     Dosage: 300 MG, QOW
     Route: 058
  3. CORDRAN [Concomitant]
     Active Substance: FLURANDRENOLIDE
     Indication: NEURODERMATITIS
     Dosage: 4 MCG/M2, QD
     Route: 003
  4. PROGESTERONE. [Concomitant]
     Active Substance: PROGESTERONE
  5. TRIAMCINOLONE [Concomitant]
     Active Substance: TRIAMCINOLONE
     Indication: DERMATITIS ATOPIC
     Dosage: 0.1 % CREAM 0.05% OINTMENT, BIW
     Route: 003
  6. DUEXIS [Concomitant]
     Active Substance: FAMOTIDINE\IBUPROFEN

REACTIONS (1)
  - Pruritus [Not Recovered/Not Resolved]
